FAERS Safety Report 9562219 (Version 1)
Quarter: 2013Q3

REPORT INFORMATION
  Report Type: Spontaneous
  Country: IN (occurrence: IN)
  Receive Date: 20130927
  Receipt Date: 20130927
  Transmission Date: 20140515
  Serious: Yes (Other)
  Sender: FDA-Public Use
  Company Number: PHHY2013IN107421

PATIENT
  Age: 62 Year
  Sex: Male

DRUGS (2)
  1. DICLOFENAC [Suspect]
     Indication: TOOTHACHE
     Route: 048
  2. EPINEPHRINE [Suspect]
     Indication: ANAPHYLACTIC SHOCK
     Dosage: 1 MG (1:1000) DILUTION OVER 5 MINUTES
     Route: 030

REACTIONS (9)
  - Anaphylactic shock [Recovering/Resolving]
  - Dyspnoea [Recovering/Resolving]
  - Pruritus generalised [Recovering/Resolving]
  - Blood pressure decreased [Recovering/Resolving]
  - Rhonchi [Recovering/Resolving]
  - Acute myocardial infarction [Recovering/Resolving]
  - Sinus tachycardia [Recovering/Resolving]
  - Chest discomfort [Recovering/Resolving]
  - Arterial thrombosis [Recovering/Resolving]
